FAERS Safety Report 16722113 (Version 1)
Quarter: 2019Q3

REPORT INFORMATION
  Report Type: Spontaneous
  Country: NZ (occurrence: NZ)
  Receive Date: 20190820
  Receipt Date: 20190820
  Transmission Date: 20191005
  Serious: Yes (Other)
  Sender: FDA-Public Use
  Company Number: NZ-BAUSCH-BL-2019-022919

PATIENT
  Age: 78 Year
  Sex: Male

DRUGS (1)
  1. IMIQUIMOD. [Suspect]
     Active Substance: IMIQUIMOD
     Indication: BASAL CELL CARCINOMA
     Route: 061
     Dates: start: 200409, end: 200410

REACTIONS (9)
  - Red blood cell sedimentation rate increased [Recovered/Resolved]
  - Weight decreased [Recovered/Resolved]
  - Orthostatic hypotension [Recovered/Resolved]
  - Night sweats [Recovered/Resolved]
  - Decreased appetite [Recovered/Resolved]
  - Malaise [Recovered/Resolved]
  - Depressed mood [Recovered/Resolved]
  - Influenza like illness [Recovered/Resolved]
  - Fatigue [Recovered/Resolved]

NARRATIVE: CASE EVENT DATE: 2004
